FAERS Safety Report 5531618-0 (Version None)
Quarter: 2007Q4

REPORT INFORMATION
  Report Type: 
  Country: None (occurrence: None)
  Receive Date: 20071119
  Receipt Date: 20070731
  Transmission Date: 20080405
  Serious: No
  Sender: FDA-Public Use
  Company Number: TPA2007A01620

PATIENT
  Age: 92 Year
  Sex: Female

DRUGS (2)
  1. ROZEREM [Suspect]
     Dosage: 8 MG, QHS, PER ORAL
     Route: 048
     Dates: start: 20070701, end: 20070701
  2. UNKNOWN HIGH BLOOD PRESSURE MEDICATION(ANTIHYPERTENSIVES) [Concomitant]

REACTIONS (3)
  - CONTUSION [None]
  - FALL [None]
  - SKIN ULCER [None]
